FAERS Safety Report 25735240 (Version 1)
Quarter: 2025Q3

REPORT INFORMATION
  Report Type: Report from Study
  Country: CA (occurrence: CA)
  Receive Date: 20250828
  Receipt Date: 20250828
  Transmission Date: 20251021
  Serious: Yes (Other)
  Sender: GILEAD
  Company Number: CA-GILEAD-2024-0686580

PATIENT
  Age: 66 Year
  Sex: Female

DRUGS (1)
  1. BICTEGRAVIR\EMTRICITABINE\TENOFOVIR ALAFENAMIDE [Suspect]
     Active Substance: BICTEGRAVIR\EMTRICITABINE\TENOFOVIR ALAFENAMIDE
     Indication: HIV infection
     Route: 065
     Dates: start: 202303, end: 202401

REACTIONS (9)
  - Polyarthritis [Unknown]
  - Nodule [Unknown]
  - Pruritus [Unknown]
  - Asthenia [Unknown]
  - Pain in extremity [Unknown]
  - Itching scar [Unknown]
  - Blood cholesterol increased [Unknown]
  - Insomnia [Unknown]
  - Inappropriate schedule of product administration [Unknown]
